APPROVED DRUG PRODUCT: VANCOMYCIN HYDROCHLORIDE
Active Ingredient: VANCOMYCIN HYDROCHLORIDE
Strength: EQ 10GM BASE/VIAL
Dosage Form/Route: INJECTABLE;INJECTION
Application: A204360 | Product #002 | TE Code: AP
Applicant: HIKMA FARMACEUTICA PORTUGAL SA
Approved: Oct 15, 2018 | RLD: No | RS: No | Type: RX